FAERS Safety Report 25046801 (Version 1)
Quarter: 2025Q1

REPORT INFORMATION
  Report Type: Other
  Country: US (occurrence: SA)
  Receive Date: 20250306
  Receipt Date: 20250306
  Transmission Date: 20250409
  Serious: Yes (unspecified)
  Sender: SAPTALIS PHARMACEUTICALS LLC
  Company Number: SA-Saptalis Pharmaceuticals LLC-2172370

PATIENT
  Age: 45 Year
  Sex: Male

DRUGS (2)
  1. METFORMIN HYDROCHLORIDE [Suspect]
     Active Substance: METFORMIN HYDROCHLORIDE
     Indication: Glucose tolerance impaired
  2. the patient had medical history significant for atrial fibrillation ma [Concomitant]

REACTIONS (1)
  - Acute generalised exanthematous pustulosis [Recovered/Resolved]
